FAERS Safety Report 4717641-4 (Version None)
Quarter: 2005Q3

REPORT INFORMATION
  Report Type: 
  Country: None (occurrence: None)
  Receive Date: 20050713
  Receipt Date: 20050531
  Transmission Date: 20060218
  Serious: Yes (Other)
  Sender: FDA-Public Use
  Company Number: 406552

PATIENT
  Sex: Male

DRUGS (2)
  1. FUZEON [Suspect]
     Indication: HIV INFECTION
  2. UNSPECIFIED MEDICATION (GENERIC UNKNOWN) [Concomitant]

REACTIONS (3)
  - INSOMNIA [None]
  - PROCEDURAL COMPLICATION [None]
  - SKIN DISCOLOURATION [None]
